FAERS Safety Report 6688235-9 (Version None)
Quarter: 2010Q2

REPORT INFORMATION
  Report Type: 
  Country: None (occurrence: None)
  Receive Date: 20100420
  Receipt Date: 20100414
  Transmission Date: 20101027
  Serious: Yes (Hospitalization)
  Sender: FDA-Public Use
  Company Number: US-BAYER-201021944GPV

PATIENT
  Age: 73 Year
  Sex: Male

DRUGS (4)
  1. ALEMTUZUMAB [Suspect]
     Indication: T-CELL PROLYMPHOCYTIC LEUKAEMIA
     Dosage: 12 DOSES
     Route: 042
  2. ALEMTUZUMAB [Suspect]
     Dosage: 2 DOSES
     Route: 042
  3. ALEMTUZUMAB [Suspect]
     Dosage: 1 DOSE
     Route: 042
  4. SULFAMETHOXAZOLE AND TRIMETHOPRIM [Concomitant]
     Indication: PROPHYLAXIS

REACTIONS (2)
  - DIARRHOEA [None]
  - GUILLAIN-BARRE SYNDROME [None]
